FAERS Safety Report 18809282 (Version 1)
Quarter: 2021Q1

REPORT INFORMATION
  Report Type: Spontaneous
  Country: BA (occurrence: BA)
  Receive Date: 20210129
  Receipt Date: 20210129
  Transmission Date: 20210419
  Serious: Yes (Death, Other)
  Sender: FDA-Public Use
  Company Number: BA-SA-2020SA332850

PATIENT
  Age: 75 Year
  Sex: Male

DRUGS (10)
  1. ZOFRAN [Concomitant]
     Active Substance: ONDANSETRON HYDROCHLORIDE
     Indication: PREMEDICATION
     Dosage: UNK
     Route: 065
  2. JEVTANA [Suspect]
     Active Substance: CABAZITAXEL
     Indication: PROSTATE CANCER
     Dosage: 20 MG/M2, Q3W
     Route: 042
     Dates: start: 20190808, end: 20190808
  3. JEVTANA [Suspect]
     Active Substance: CABAZITAXEL
     Dosage: UNK
     Route: 042
     Dates: start: 20200702, end: 20200702
  4. NIZON [Concomitant]
     Dosage: 10 MG, QD
     Route: 065
  5. CONTROLOC [Concomitant]
     Active Substance: PANTOPRAZOLE SODIUM
     Dosage: 40 MG, QD
     Route: 065
  6. BAZETHAM [Concomitant]
     Active Substance: TAMSULOSIN
     Dosage: 0.4 MG, QD
     Route: 065
  7. DEXAMETHASONE. [Concomitant]
     Active Substance: DEXAMETHASONE
     Dosage: 4 MG, BID
     Route: 065
  8. SYNOPEN [CHLOROPYRAMINE] [Concomitant]
     Indication: PREMEDICATION
     Dosage: 1 DF, QD
     Route: 065
  9. LUTEINIZING HORMONE?RELEASING HORMONE [Concomitant]
     Active Substance: GONADORELIN
     Dosage: UNK UNK, Q3M
     Route: 065
  10. PEPTORAN [RANITIDINE] [Concomitant]
     Indication: PREMEDICATION
     Dosage: 50 MG, QD
     Route: 065

REACTIONS (3)
  - Anaemia [Unknown]
  - Disease progression [Fatal]
  - Neutropenia [Unknown]
